FAERS Safety Report 9704637 (Version 1)
Quarter: 2013Q4

REPORT INFORMATION
  Report Type: Spontaneous
  Country: JP (occurrence: JP)
  Receive Date: 20131122
  Receipt Date: 20131122
  Transmission Date: 20140711
  Serious: Yes (Other)
  Sender: FDA-Public Use
  Company Number: JP-PFIZER INC-2013331845

PATIENT
  Age: 73 Year
  Sex: Female

DRUGS (1)
  1. TRIAZOLAM [Suspect]
     Indication: INITIAL INSOMNIA
     Dosage: UNSPECIFIED SINGLE DOSE
     Route: 048

REACTIONS (1)
  - Delirium [Unknown]
